FAERS Safety Report 6889469-0 (Version None)
Quarter: 2010Q3

REPORT INFORMATION
  Report Type: 
  Country: None (occurrence: None)
  Receive Date: 20100730
  Receipt Date: 20080514
  Transmission Date: 20110219
  Serious: No
  Sender: FDA-Public Use
  Company Number: US-PFIZER INC-001-0981-991303

PATIENT
  Sex: Male
  Weight: 74.84 kg

DRUGS (3)
  1. LIPITOR [Suspect]
     Indication: BLOOD CHOLESTEROL INCREASED
     Route: 048
     Dates: start: 19980701
  2. LIPITOR [Suspect]
     Dosage: DAILY
     Route: 048
     Dates: start: 19981101, end: 19981201
  3. TENORMIN [Concomitant]

REACTIONS (1)
  - MYALGIA [None]
